FAERS Safety Report 9742101 (Version 3)
Quarter: 2014Q1

REPORT INFORMATION
  Report Type: Spontaneous
  Country: US (occurrence: US)
  Receive Date: 20131210
  Receipt Date: 20140205
  Transmission Date: 20141002
  Serious: Yes (Hospitalization)
  Sender: FDA-Public Use
  Company Number: US-BAYER-2013-147808

PATIENT
  Age: 26 Year
  Sex: Female
  Weight: 82 kg

DRUGS (1)
  1. MIRENA [Suspect]
     Indication: CONTRACEPTION
     Dosage: 20 MCG/24HR, CONT
     Route: 015
     Dates: start: 20090923, end: 20120115

REACTIONS (9)
  - Uterine perforation [None]
  - Ruptured ectopic pregnancy [None]
  - Gastrointestinal injury [None]
  - Drug ineffective [None]
  - Pelvic pain [None]
  - Vaginal haemorrhage [None]
  - Device dislocation [None]
  - Injury [None]
  - Emotional distress [None]
